FAERS Safety Report 12273570 (Version 1)
Quarter: 2016Q2

REPORT INFORMATION
  Report Type: Spontaneous
  Country: BR (occurrence: BR)
  Receive Date: 20160415
  Receipt Date: 20160415
  Transmission Date: 20160815
  Serious: Yes (Other)
  Sender: FDA-Public Use
  Company Number: PHHY2016BR050645

PATIENT
  Sex: Female

DRUGS (1)
  1. CODATEN [Suspect]
     Active Substance: CODEINE PHOSPHATE\DICLOFENAC SODIUM
     Indication: PRODUCT USED FOR UNKNOWN INDICATION
     Route: 065

REACTIONS (8)
  - Vertigo [Unknown]
  - Hallucination [Unknown]
  - Disorientation [Unknown]
  - Vomiting [Unknown]
  - Road traffic accident [Unknown]
  - Hypotension [Unknown]
  - Diarrhoea [Unknown]
  - Headache [Unknown]
